FAERS Safety Report 25388042 (Version 2)
Quarter: 2025Q3

REPORT INFORMATION
  Report Type: Spontaneous
  Country: US (occurrence: US)
  Receive Date: 20250603
  Receipt Date: 20250704
  Transmission Date: 20251021
  Serious: Yes (Other)
  Sender: ROCHE
  Company Number: US-ROCHE-10000296634

PATIENT
  Age: 20 Year
  Sex: Female

DRUGS (3)
  1. XOLAIR PFS [Suspect]
     Active Substance: OMALIZUMAB
     Indication: Urticaria
     Dosage: STRENGTH: 150MG/ML
     Route: 058
     Dates: start: 202407
  2. XOLAIR PFS [Suspect]
     Active Substance: OMALIZUMAB
     Indication: Urticaria
     Dosage: STRENGTH: 300MG/2ML
     Route: 058
     Dates: start: 202407
  3. XOLAIR PFS [Suspect]
     Active Substance: OMALIZUMAB

REACTIONS (6)
  - Off label use [Unknown]
  - Anaphylactic reaction [Unknown]
  - Urticaria [Unknown]
  - Illness [Unknown]
  - Dyspnoea [Unknown]
  - Dermatitis contact [Unknown]

NARRATIVE: CASE EVENT DATE: 20250607
